FAERS Safety Report 19463655 (Version 1)
Quarter: 2021Q2

REPORT INFORMATION
  Report Type: Spontaneous
  Country: US (occurrence: US)
  Receive Date: 20210625
  Receipt Date: 20210625
  Transmission Date: 20210717
  Serious: No
  Sender: FDA-Public Use
  Company Number: US-SEBELA IRELAND LIMITED-2021SEB00018

PATIENT
  Age: 6 Decade
  Sex: Female
  Weight: 50.79 kg

DRUGS (3)
  1. PRAMOSONE [Suspect]
     Active Substance: HYDROCORTISONE ACETATE\PRAMOXINE HYDROCHLORIDE
     Indication: GENITAL TRACT INFLAMMATION
     Dosage: ^A DIME TO A NICKEL SIZE,^ 2X/DAY
     Route: 061
     Dates: start: 2016
  2. PRAMOSONE [Suspect]
     Active Substance: HYDROCORTISONE ACETATE\PRAMOXINE HYDROCHLORIDE
     Indication: INFLAMMATION
     Dosage: ^A DIME TO A NICKEL SIZE,^ 2X/DAY
     Route: 061
     Dates: start: 2008
  3. AMITRIPTYLINE [Concomitant]
     Active Substance: AMITRIPTYLINE

REACTIONS (2)
  - Application site discomfort [Recovered/Resolved]
  - Burning sensation [Recovered/Resolved]

NARRATIVE: CASE EVENT DATE: 2016
